FAERS Safety Report 7474664-2 (Version None)
Quarter: 2011Q2

REPORT INFORMATION
  Report Type: 
  Country: None (occurrence: None)
  Receive Date: 20110512
  Receipt Date: 20110428
  Transmission Date: 20111010
  Serious: Yes (Other)
  Sender: FDA-Public Use
  Company Number: US-JNJFOC-20110501618

PATIENT
  Sex: Female
  Weight: 66.68 kg

DRUGS (5)
  1. ACIPHEX [Concomitant]
     Indication: GASTROOESOPHAGEAL REFLUX DISEASE
     Route: 048
  2. NUCYNTA [Suspect]
     Indication: PAIN IN EXTREMITY
     Dosage: 1 OR 2 EVERY 4 HOURS AS NEEDED
     Route: 048
  3. CELEBREX [Concomitant]
     Indication: SJOGREN'S SYNDROME
     Route: 048
  4. SYNTHROID [Concomitant]
     Indication: HYPOTHYROIDISM
     Route: 048
  5. CYMBALTA [Concomitant]
     Indication: MIGRAINE
     Dosage: AT BED TIME
     Route: 048

REACTIONS (8)
  - DIZZINESS [None]
  - MALAISE [None]
  - APHASIA [None]
  - DECREASED APPETITE [None]
  - FEELING DRUNK [None]
  - FATIGUE [None]
  - NAUSEA [None]
  - FEELING ABNORMAL [None]
